FAERS Safety Report 6551971-9 (Version None)
Quarter: 2010Q1

REPORT INFORMATION
  Report Type: 
  Country: None (occurrence: None)
  Receive Date: 20100120
  Receipt Date: 20100108
  Transmission Date: 20100710
  Serious: Yes (Other)
  Sender: FDA-Public Use
  Company Number: 2009-5061

PATIENT
  Age: 45 Year
  Sex: Male
  Weight: 65 kg

DRUGS (2)
  1. SOMATULINE DEPOT [Suspect]
     Indication: ACROMEGALY
     Dosage: (90 MG,)SUBCUTANEOUS
     Route: 058
     Dates: start: 20090522, end: 20090620
  2. SOMATULINE DEPOT [Suspect]
     Indication: ACROMEGALY
     Dosage: (60 MG, ONCE),SUBCUTANEOUS
     Route: 058
     Dates: start: 20091114, end: 20091114

REACTIONS (2)
  - CHOLELITHIASIS [None]
  - CYTOLYTIC HEPATITIS [None]
